FAERS Safety Report 24457433 (Version 2)
Quarter: 2025Q3

REPORT INFORMATION
  Report Type: Report from Study
  Country: US (occurrence: US)
  Receive Date: 20241018
  Receipt Date: 20250810
  Transmission Date: 20251021
  Serious: Yes (Hospitalization, Other)
  Sender: ALEXION PHARMACEUTICALS
  Company Number: US-AstraZeneca-CH-00724040A

PATIENT
  Age: 62 Year
  Sex: Male
  Weight: 98.9 kg

DRUGS (3)
  1. OLAPARIB [Suspect]
     Active Substance: OLAPARIB
     Indication: Breast cancer
     Dosage: 300 MILLIGRAM, BID
     Dates: start: 20240830
  2. ELIQUIS [Concomitant]
     Active Substance: APIXABAN
     Route: 065
  3. MORPHINE SULFATE [Concomitant]
     Active Substance: MORPHINE SULFATE
     Route: 065

REACTIONS (11)
  - Urinary tract infection [Unknown]
  - Haemoglobin decreased [Unknown]
  - Chest discomfort [Unknown]
  - Productive cough [Unknown]
  - Taste disorder [Unknown]
  - Flatulence [Unknown]
  - Frequent bowel movements [Unknown]
  - Decreased appetite [Unknown]
  - Dry mouth [Unknown]
  - Pulmonary thrombosis [Unknown]
  - Fatigue [Unknown]

NARRATIVE: CASE EVENT DATE: 20241008
